FAERS Safety Report 17178859 (Version 1)
Quarter: 2019Q4

REPORT INFORMATION
  Report Type: Spontaneous
  Country: FR (occurrence: FR)
  Receive Date: 20191219
  Receipt Date: 20191219
  Transmission Date: 20200122
  Serious: Yes (Hospitalization)
  Sender: FDA-Public Use
  Company Number: FR-GILEAD-2019-0442290

PATIENT
  Age: 72 Year
  Sex: Male
  Weight: 63.3 kg

DRUGS (8)
  1. ZYDELIG [Suspect]
     Active Substance: IDELALISIB
     Indication: PRODUCT USED FOR UNKNOWN INDICATION
     Dosage: 100 MG, QD
     Route: 048
     Dates: start: 20191202, end: 20191203
  2. DOLIPRANE [Concomitant]
     Active Substance: ACETAMINOPHEN
     Dosage: 3000 MG, UNK
     Route: 048
     Dates: start: 20190419
  3. ZOPICLONE [Concomitant]
     Active Substance: ZOPICLONE
     Dosage: 7.5 MG, UNK
     Route: 048
     Dates: start: 20190404
  4. ALLOPURINOL. [Concomitant]
     Active Substance: ALLOPURINOL
     Dosage: 200 MG, UNK
     Route: 048
     Dates: start: 20191115
  5. CASODEX [Concomitant]
     Active Substance: BICALUTAMIDE
     Dosage: 50 MG, UNK
     Route: 048
     Dates: start: 20190906
  6. TIAPRIDAL [Concomitant]
     Active Substance: TIAPRIDE HYDROCHLORIDE
     Dosage: 40 MG, UNK
     Route: 048
     Dates: start: 20190730
  7. SODIUM VALPROATE [Concomitant]
     Active Substance: VALPROATE SODIUM
     Dosage: 600 MG, UNK
     Route: 048
     Dates: start: 20190514
  8. ENANTONE LP [Concomitant]
     Active Substance: LEUPROLIDE ACETATE
     Dosage: 3.75 MG, UNK
     Dates: start: 20190924

REACTIONS (5)
  - Vomiting [Recovered/Resolved]
  - Lung disorder [Recovered/Resolved]
  - Oxygen saturation decreased [Recovered/Resolved]
  - Pyrexia [Recovered/Resolved]
  - Off label use [Recovered/Resolved]

NARRATIVE: CASE EVENT DATE: 20191202
